FAERS Safety Report 5776732-X (Version None)
Quarter: 2008Q2

REPORT INFORMATION
  Report Type: 
  Country: None (occurrence: None)
  Receive Date: 20080616
  Receipt Date: 20080604
  Transmission Date: 20081010
  Serious: Yes (Hospitalization)
  Sender: FDA-Public Use
  Company Number: 08P-062-0452493-00

PATIENT
  Age: 11 Month
  Sex: Male

DRUGS (1)
  1. SYNAGIS [Suspect]
     Indication: IMMUNISATION
     Dosage: SUBCUTENOUS
     Route: 058
     Dates: end: 20080401

REACTIONS (1)
  - CARDIAC OPERATION [None]
